FAERS Safety Report 9530183 (Version 1)
Quarter: 2013Q3

REPORT INFORMATION
  Report Type: Spontaneous
  Country: FR (occurrence: FR)
  Receive Date: 20130917
  Receipt Date: 20130917
  Transmission Date: 20140515
  Serious: Yes (Hospitalization)
  Sender: FDA-Public Use
  Company Number: FR-PFIZER INC-2013265002

PATIENT
  Age: 77 Year
  Sex: Female

DRUGS (12)
  1. EFFEXOR LP [Suspect]
     Indication: DEPRESSION
     Dosage: 37.5 MG, 1X/DAY
     Route: 048
     Dates: start: 20130710, end: 20130807
  2. INVANZ [Suspect]
     Indication: ANTIBIOTIC THERAPY
     Dosage: 1 G, 1X/DAY
     Route: 042
     Dates: start: 20130802, end: 20130807
  3. INVANZ [Suspect]
     Indication: ESCHERICHIA TEST POSITIVE
  4. SERESTA [Suspect]
     Indication: DEPRESSION
     Dosage: 50 MG, 1X/DAY
     Route: 048
     Dates: start: 20130710
  5. SERESTA [Suspect]
     Dosage: 25 MG, 1X/DAY
     Dates: start: 20130806
  6. TERCIAN [Suspect]
     Indication: AGITATION
     Dosage: 10 DROPS IN MORNING AND NOON, 20 DROPS IN EVENING AND BEDTIME
     Route: 048
     Dates: start: 20130710
  7. TERCIAN [Suspect]
     Dosage: 5 GTT, 3X/DAY
     Route: 048
  8. HYDROCORTISONE [Concomitant]
     Indication: PEMPHIGOID
     Dosage: 20 MG, 1X/DAY
     Route: 048
     Dates: start: 20130710, end: 20130807
  9. NOVATREX [Concomitant]
     Indication: PEMPHIGOID
     Dosage: 7.5 MG, WEEKLY
     Route: 048
     Dates: start: 20130710, end: 20130807
  10. SPECIAFOLDINE [Concomitant]
     Indication: FOLATE DEFICIENCY
     Dosage: 5 MG, 1X/DAY
     Route: 048
     Dates: start: 20130710, end: 20130807
  11. CEFTRIAXONE [Concomitant]
     Indication: ANTIBIOTIC THERAPY
     Dosage: 1 G, 1X/DAY
     Route: 058
     Dates: start: 20130724, end: 20130725
  12. TIENAM [Concomitant]
     Indication: ANTIBIOTIC THERAPY
     Dosage: 1 DF, 3X/DAY
     Route: 042
     Dates: start: 20130725, end: 20130801

REACTIONS (2)
  - Status epilepticus [Recovering/Resolving]
  - Loss of consciousness [Recovering/Resolving]
